FAERS Safety Report 26019342 (Version 1)
Quarter: 2025Q4

REPORT INFORMATION
  Report Type: Spontaneous
  Country: US (occurrence: US)
  Receive Date: 20251110
  Receipt Date: 20251110
  Transmission Date: 20260117
  Serious: Yes (Life-Threatening, Hospitalization, Other)
  Sender: CIPLA
  Company Number: None

PATIENT

DRUGS (2)
  1. AMLODIPINE [Suspect]
     Active Substance: AMLODIPINE BESYLATE
     Dosage: 900 MILLIGRAM, INGESTION OF 90 TABLETS OF AMLODIPINE 10 MG
     Route: 048
  2. ASPIRIN [Suspect]
     Active Substance: ASPIRIN
     Dosage: 10-20 TABLETS OF ASPIRIN 81 MG, INGESTED
     Route: 048

REACTIONS (3)
  - Intentional overdose [Unknown]
  - Distributive shock [Recovered/Resolved]
  - Blood lactic acid increased [Unknown]
